FAERS Safety Report 7231803-6 (Version None)
Quarter: 2011Q1

REPORT INFORMATION
  Report Type: 
  Country: None (occurrence: None)
  Receive Date: 20110118
  Receipt Date: 20110111
  Transmission Date: 20110831
  Serious: Yes (Life-Threatening, Hospitalization)
  Sender: FDA-Public Use
  Company Number: FR-ASTRAZENECA-2011SE01893

PATIENT
  Age: 65 Year
  Sex: Male

DRUGS (6)
  1. PROPOFOL [Suspect]
     Indication: INDUCTION OF ANAESTHESIA
     Route: 042
     Dates: start: 20101214, end: 20101214
  2. ACETAMINOPHEN W/ PROPOXYPHENE HCL [Concomitant]
  3. ISKEDYL [Concomitant]
  4. SUCCINYLCHOLINE CHLORIDE [Suspect]
     Route: 065
     Dates: start: 20101214, end: 20101214
  5. SUCCINYLCHOLINE CHLORIDE [Suspect]
     Indication: PRODUCT USED FOR UNKNOWN INDICATION
     Route: 065
     Dates: start: 20101214, end: 20101214
  6. PARIET [Concomitant]

REACTIONS (1)
  - ANAPHYLACTIC SHOCK [None]
